FAERS Safety Report 14956396 (Version 1)
Quarter: 2018Q2

REPORT INFORMATION
  Report Type: Spontaneous
  Country: US (occurrence: US)
  Receive Date: 20180531
  Receipt Date: 20180531
  Transmission Date: 20180711
  Serious: No
  Sender: FDA-Public Use
  Company Number: US-PFIZER INC-2018220256

PATIENT
  Sex: Female

DRUGS (2)
  1. LYRICA [Suspect]
     Active Substance: PREGABALIN
     Indication: NEURALGIA
  2. LYRICA [Suspect]
     Active Substance: PREGABALIN
     Indication: TRIGEMINAL NEURALGIA
     Dosage: 150 MG, 3X/DAY
     Route: 048
     Dates: end: 20180520

REACTIONS (13)
  - Hot flush [Not Recovered/Not Resolved]
  - Nausea [Unknown]
  - Gastric disorder [Unknown]
  - Chills [Unknown]
  - Diarrhoea [Unknown]
  - Abdominal pain upper [Unknown]
  - Drug effect decreased [Unknown]
  - Intentional product misuse [Unknown]
  - Condition aggravated [Unknown]
  - Peripheral swelling [Unknown]
  - Cold sweat [Not Recovered/Not Resolved]
  - Weight increased [Unknown]
  - Feeling abnormal [Unknown]

NARRATIVE: CASE EVENT DATE: 20180520
